FAERS Safety Report 9946035 (Version 2)
Quarter: 2014Q1

REPORT INFORMATION
  Report Type: Spontaneous
  Country: US (occurrence: US)
  Receive Date: 20140303
  Receipt Date: 20140303
  Transmission Date: 20141002
  Serious: No
  Sender: FDA-Public Use
  Company Number: US-AMGEN-USASP2013068627

PATIENT
  Age: 63 Year
  Sex: Female
  Weight: 122 kg

DRUGS (6)
  1. ENBREL [Suspect]
     Indication: RHEUMATOID ARTHRITIS
     Dosage: 50 MG, QWK
     Route: 058
     Dates: start: 20130319, end: 201309
  2. PREDNISONE [Concomitant]
     Dosage: 5 MG, QD
     Route: 048
  3. ESTRADIOL [Concomitant]
     Dosage: 5 MG, QD
     Route: 048
  4. SYNTHROID [Concomitant]
     Dosage: UNK UNK, QD
     Route: 048
  5. NADOLOL [Concomitant]
     Dosage: UNK UNK, QD
     Route: 048
  6. LISINOPRIL [Concomitant]
     Dosage: UNK UNK, QD
     Route: 048

REACTIONS (5)
  - Sinus congestion [Recovered/Resolved]
  - Muscle spasms [Recovered/Resolved]
  - Rash [Not Recovered/Not Resolved]
  - Drug ineffective [Unknown]
  - Myalgia [Unknown]
